FAERS Safety Report 6544977-7 (Version None)
Quarter: 2010Q1

REPORT INFORMATION
  Report Type: 
  Country: None (occurrence: None)
  Receive Date: 20100121
  Receipt Date: 20091124
  Transmission Date: 20100710
  Serious: Yes (Hospitalization)
  Sender: FDA-Public Use
  Company Number: A0793825A

PATIENT
  Age: 59 Year
  Sex: Female

DRUGS (16)
  1. PROMACTA [Suspect]
     Indication: IDIOPATHIC THROMBOCYTOPENIC PURPURA
     Dosage: 75MG PER DAY
     Route: 048
     Dates: start: 20090210, end: 20090409
  2. VINCRISTINE [Concomitant]
     Indication: IDIOPATHIC THROMBOCYTOPENIC PURPURA
     Dates: start: 20090108
  3. ZETIA [Concomitant]
  4. FOLVITE [Concomitant]
  5. NORVASC [Concomitant]
  6. TENORMIN [Concomitant]
  7. POTASSIUM [Concomitant]
  8. PRILOSEC [Concomitant]
  9. AMICAR [Concomitant]
  10. KEPPRA [Concomitant]
  11. THEO-DUR [Concomitant]
  12. VALIUM [Concomitant]
  13. XANAX [Concomitant]
  14. MYCOSTATIN [Concomitant]
  15. TYLENOL (CAPLET) [Concomitant]
  16. IRON SULFATETHIAMIN COMPOUND TAB [Concomitant]

REACTIONS (8)
  - DRUG INEFFECTIVE [None]
  - EMOTIONAL DISORDER [None]
  - ENTEROCOLITIS HAEMORRHAGIC [None]
  - EPISTAXIS [None]
  - GINGIVAL BLEEDING [None]
  - HEMIPARESIS [None]
  - NEUROLOGICAL SYMPTOM [None]
  - SPEECH DISORDER [None]
